FAERS Safety Report 16219603 (Version 1)
Quarter: 2019Q2

REPORT INFORMATION
  Report Type: Other
  Country: DE (occurrence: DE)
  Receive Date: 20190420
  Receipt Date: 20190420
  Transmission Date: 20190711
  Serious: Yes (Hospitalization)
  Sender: FDA-Public Use
  Company Number: DE-MACLEODS PHARMACEUTICALS US LTD-MAC2019020928

PATIENT

DRUGS (17)
  1. ARIPIPRAZOLE. [Suspect]
     Active Substance: ARIPIPRAZOLE
     Indication: AFFECTIVE DISORDER
     Dosage: 7.5 MILLIGRAM, QD
     Route: 065
     Dates: start: 20171214, end: 20171217
  2. RISPERDAL [Interacting]
     Active Substance: RISPERIDONE
     Dosage: 2 MILLIGRAM, QD
     Route: 065
     Dates: start: 20171231, end: 20180102
  3. RISPERDAL [Interacting]
     Active Substance: RISPERIDONE
     Dosage: 2 MILLIGRAM, QD
     Route: 065
     Dates: start: 20171212, end: 20171213
  4. RISPERDAL [Interacting]
     Active Substance: RISPERIDONE
     Dosage: 3 MILLIGRAM, QD
     Route: 065
     Dates: start: 20171222, end: 20171230
  5. AKINETON [Concomitant]
     Active Substance: BIPERIDEN HYDROCHLORIDE
     Dosage: 4 MILLIGRAM, QD
     Route: 065
     Dates: start: 20171230, end: 20180102
  6. ZOP [Concomitant]
     Indication: PRODUCT USED FOR UNKNOWN INDICATION
     Dosage: 7.5 MILLIGRAM, QD
     Route: 065
     Dates: start: 20171214
  7. VENLAFAXINE [Concomitant]
     Active Substance: VENLAFAXINE HYDROCHLORIDE
     Indication: PRODUCT USED FOR UNKNOWN INDICATION
     Dosage: 75 MILLIGRAM, QD
     Route: 065
     Dates: start: 20171213, end: 20171215
  8. TAVOR [Concomitant]
     Dosage: 1.5 MILLIGRAM, QD
     Route: 065
     Dates: start: 20171218
  9. RISPERDAL [Interacting]
     Active Substance: RISPERIDONE
     Indication: PRODUCT USED FOR UNKNOWN INDICATION
     Dosage: 3 MILLIGRAM, QD
     Route: 065
     Dates: start: 20171214, end: 20171215
  10. VENLAFAXINE [Concomitant]
     Active Substance: VENLAFAXINE HYDROCHLORIDE
     Dosage: 150 MILLIGRAM, QD,OUTPATIENT TO 12.12.2017
     Route: 065
     Dates: start: 20171212
  11. ARIPIPRAZOLE. [Interacting]
     Active Substance: ARIPIPRAZOLE
     Dosage: 10 MILLIGRAM, QD
     Route: 065
     Dates: start: 20171222, end: 20180117
  12. RISPERDAL [Interacting]
     Active Substance: RISPERIDONE
     Dosage: 4 MILLIGRAM, QD
     Route: 065
     Dates: start: 20171216, end: 20171221
  13. ARIPIPRAZOLE. [Interacting]
     Active Substance: ARIPIPRAZOLE
     Dosage: 7.5 MILLIGRAM, QD
     Route: 065
     Dates: start: 20180118
  14. RISPERDAL [Interacting]
     Active Substance: RISPERIDONE
     Dosage: 1 MILLIGRAM, QD
     Route: 065
     Dates: start: 20180103, end: 20180108
  15. AKINETON [Concomitant]
     Active Substance: BIPERIDEN HYDROCHLORIDE
     Indication: PRODUCT USED FOR UNKNOWN INDICATION
     Dosage: 2 MILLIGRAM, QD
     Route: 065
     Dates: start: 20180103, end: 20180108
  16. TAVOR [Concomitant]
     Dosage: 2 MILLIGRAM, QD
     Route: 065
     Dates: start: 20171214, end: 20171217
  17. TAVOR [Concomitant]
     Indication: PRODUCT USED FOR UNKNOWN INDICATION
     Dosage: 1 MILLIGRAM, QD
     Route: 065
     Dates: start: 20180101

REACTIONS (1)
  - Akathisia [Recovered/Resolved]

NARRATIVE: CASE EVENT DATE: 20171230
